FAERS Safety Report 8699897 (Version 2)
Quarter: 2012Q4

REPORT INFORMATION
  Report Type: 
  Country: US (occurrence: US)
  Receive Date: 20120802
  Receipt Date: 20120912
  Transmission Date: 20130627
  Serious: Yes (Other)
  Sender: FDA-Public Use
  Company Number: US-ASTRAZENECA-2012SE51574

PATIENT
  Sex: Female

DRUGS (4)
  1. NEXIUM [Suspect]
     Route: 048
     Dates: start: 2010
  2. NEXIUM [Suspect]
     Route: 048
  3. NEXIUM [Suspect]
     Route: 048
  4. MORE MEDICINE [Concomitant]

REACTIONS (5)
  - Wrist fracture [Unknown]
  - Ligament sprain [Unknown]
  - Gastrooesophageal reflux disease [Recovered/Resolved]
  - Condition aggravated [Unknown]
  - Drug dose omission [Recovered/Resolved]
